FAERS Safety Report 4711487-9 (Version None)
Quarter: 2005Q3

REPORT INFORMATION
  Report Type: 
  Country: None (occurrence: None)
  Receive Date: 20050711
  Receipt Date: 20050627
  Transmission Date: 20060218
  Serious: Yes (Other)
  Sender: FDA-Public Use
  Company Number: US015518

PATIENT
  Age: 18 Year

DRUGS (2)
  1. GABITRIL [Suspect]
     Indication: SLEEP DISORDER
     Dosage: 4 MG QD ORAL
     Route: 048
  2. GABITRIL [Suspect]
     Indication: SLEEP DISORDER
     Dosage: 8 MG ORAL
     Route: 048

REACTIONS (3)
  - CATATONIA [None]
  - CONVULSION [None]
  - DELIRIUM [None]
